FAERS Safety Report 10026830 (Version 1)
Quarter: 2014Q1

REPORT INFORMATION
  Report Type: Spontaneous
  Country: US (occurrence: US)
  Receive Date: 20140321
  Receipt Date: 20140321
  Transmission Date: 20141002
  Serious: Yes (Death, Other)
  Sender: FDA-Public Use
  Company Number: US-ASTRAZENECA-2014SE19216

PATIENT
  Sex: Female

DRUGS (2)
  1. BUDESONIDE [Suspect]
     Route: 055
  2. REVATIO [Suspect]
     Indication: PULMONARY ARTERIAL HYPERTENSION
     Route: 048
     Dates: start: 201012, end: 20131225

REACTIONS (3)
  - Respiratory failure [Fatal]
  - Cardiac failure [Unknown]
  - Drug hypersensitivity [Unknown]
